FAERS Safety Report 24658732 (Version 4)
Quarter: 2024Q4

REPORT INFORMATION
  Report Type: Spontaneous
  Country: PL (occurrence: PL)
  Receive Date: 20241125
  Receipt Date: 20241231
  Transmission Date: 20250114
  Serious: Yes (Death, Disabling, Other)
  Sender: SANDOZ
  Company Number: PL-ABBVIE-20P-129-3384818-00

PATIENT
  Age: 61 Year
  Sex: Male

DRUGS (70)
  1. ACETAMINOPHEN [Suspect]
     Active Substance: ACETAMINOPHEN
     Indication: Pain
     Dosage: 375 MG, ADHOC UPTO 4 TIMES DAILY
     Route: 065
  2. BICALUTAMIDE [Suspect]
     Active Substance: BICALUTAMIDE
     Indication: Prostate cancer
     Dosage: 50 MILLIGRAM, QD
     Route: 065
     Dates: start: 201603
  3. DICLOFENAC SODIUM [Suspect]
     Active Substance: DICLOFENAC SODIUM
     Indication: Pain
     Dosage: 100 MG, Q12H (100 MG, BID)
     Route: 065
  4. DOCETAXEL [Suspect]
     Active Substance: DOCETAXEL
     Indication: Chemotherapy
     Dosage: 50 MG/M2, 8 ADMINISTRATIONS
     Route: 065
  5. DENOSUMAB [Suspect]
     Active Substance: DENOSUMAB
     Indication: Prostate cancer
     Dosage: 120 MILLIGRAM
     Route: 058
     Dates: start: 201603
  6. DENOSUMAB [Suspect]
     Active Substance: DENOSUMAB
     Dosage: 120.000MG
     Route: 065
     Dates: start: 201603
  7. FENTANYL [Suspect]
     Active Substance: FENTANYL
     Dosage: 200 UG, QH
     Route: 062
  8. FENTANYL [Suspect]
     Active Substance: FENTANYL
     Dosage: 200 UG, QH
     Route: 062
  9. FENTANYL [Suspect]
     Active Substance: FENTANYL
     Dosage: 200 MICROGRAM
     Route: 002
  10. FENTANYL [Suspect]
     Active Substance: FENTANYL
     Dosage: 200 UG, 3-4 TIMES A DAY
     Route: 002
  11. FENTANYL [Suspect]
     Active Substance: FENTANYL
     Dosage: 200 UG, 3-4 TIMES A DAY
     Route: 048
  12. FENTANYL [Suspect]
     Active Substance: FENTANYL
     Dosage: 400 UG, 3 TO 4 TIMES A DAY
     Route: 002
  13. FENTANYL [Suspect]
     Active Substance: FENTANYL
     Indication: Cancer pain
     Dosage: 50 UG, QD
     Route: 062
     Dates: start: 201603, end: 2016
  14. FENTANYL [Suspect]
     Active Substance: FENTANYL
     Indication: Pain
     Dosage: 50 MICROGRAM, Q72H
     Route: 062
     Dates: start: 2016, end: 2016
  15. FENTANYL [Suspect]
     Active Substance: FENTANYL
     Dosage: 400 UNK
     Route: 002
  16. GABAPENTIN [Suspect]
     Active Substance: GABAPENTIN
     Indication: Pain
     Dosage: 0.3 G, TID
     Route: 065
     Dates: start: 201603, end: 2016
  17. GABAPENTIN [Suspect]
     Active Substance: GABAPENTIN
     Dosage: 150 MG, QD
     Route: 065
  18. GABAPENTIN [Suspect]
     Active Substance: GABAPENTIN
     Dosage: 300 MILLIGRAM
     Route: 065
  19. GABAPENTIN [Suspect]
     Active Substance: GABAPENTIN
     Dosage: 900 MG
     Route: 065
  20. KETOPROFEN [Suspect]
     Active Substance: KETOPROFEN
     Indication: Pain
     Dosage: 100 MILLIGRAM, BID
     Route: 065
     Dates: start: 201603
  21. KETOPROFEN [Suspect]
     Active Substance: KETOPROFEN
     Dosage: 100 MILLIGRAM, BID -MAR-2016
     Route: 065
     Dates: start: 201605
  22. LEUPROLIDE ACETATE [Suspect]
     Active Substance: LEUPROLIDE ACETATE
     Indication: Hormone therapy
     Dosage: UNK, Q3MO
     Route: 065
  23. LEUPROLIDE ACETATE [Suspect]
     Active Substance: LEUPROLIDE ACETATE
     Indication: Prostate cancer
     Dosage: UNK, EVERY SIX MONTHS
     Route: 065
  24. MORPHINE SULFATE [Suspect]
     Active Substance: MORPHINE SULFATE
     Indication: Pain
     Dosage: 0.02 G, QID (FAST-RELEASE)
     Route: 048
     Dates: start: 201603
  25. MORPHINE SULFATE [Suspect]
     Active Substance: MORPHINE SULFATE
     Indication: Cancer pain
     Dosage: 20 MG
     Route: 065
  26. ACETAMINOPHEN\TRAMADOL [Suspect]
     Active Substance: ACETAMINOPHEN\TRAMADOL
     Indication: Analgesic therapy
     Dosage: 1 DOSAGE FORM TRAMADOL HYDROCHLORIDE/ PARACETAMOL 75/650 MG/MG, QID, AS NEEDED
     Route: 065
  27. ACETAMINOPHEN\TRAMADOL [Suspect]
     Active Substance: ACETAMINOPHEN\TRAMADOL
     Dosage: UNKUNK UNK, AS NEEDED (75/650 MG/MG), UP TO 4 TIMES A DAY
     Route: 065
  28. TRAMADOL HYDROCHLORIDE [Suspect]
     Active Substance: TRAMADOL HYDROCHLORIDE
     Indication: Pain
     Dosage: 37.5 MG, ADHOC UPTO 4 TIMES DAILY
     Route: 065
  29. ABIRATERONE ACETATE [Concomitant]
     Active Substance: ABIRATERONE ACETATE
     Indication: Product used for unknown indication
     Dosage: UNK
     Route: 065
  30. DEXKETOPROFEN [Concomitant]
     Active Substance: DEXKETOPROFEN
     Dosage: 1 DF, UP TO 3 TIMES PER DAY
     Route: 065
  31. DEXKETOPROFEN [Concomitant]
     Active Substance: DEXKETOPROFEN
     Dosage: 1 DOSAGE FORM, TID
     Route: 065
  32. DEXKETOPROFEN [Concomitant]
     Active Substance: DEXKETOPROFEN
     Indication: Product used for unknown indication
     Dosage: 1 DOSAGE FORM, TID
     Route: 065
  33. DEXKETOPROFEN [Concomitant]
     Active Substance: DEXKETOPROFEN
     Dosage: 1 DF, UP TO 3 TIMES PER DAY
     Route: 065
  34. DEXKETOPROFEN [Concomitant]
     Active Substance: DEXKETOPROFEN
     Dosage: 1 DF, UP TO 3 TIMES PER DAY
     Route: 065
  35. IRON [Concomitant]
     Active Substance: IRON
     Indication: Product used for unknown indication
     Dosage: UNK
     Route: 065
  36. IRON [Concomitant]
     Active Substance: IRON
     Dosage: UNKUNK
     Route: 065
  37. IRON [Concomitant]
     Active Substance: IRON
     Dosage: UNKUNK
     Route: 065
  38. METAMIZOLE SODIUM [Concomitant]
     Active Substance: METAMIZOLE SODIUM
     Indication: Product used for unknown indication
     Dosage: 2 DF, UP TO 4 TIMES PER DAY
     Route: 065
  39. MORPHINE [Concomitant]
     Active Substance: MORPHINE
     Indication: Pain
     Dosage: 0.02 GRAM, QID
     Route: 048
     Dates: start: 201603
  40. MORPHINE [Concomitant]
     Active Substance: MORPHINE
     Dosage: 0.02 GRAM, QID
     Route: 048
     Dates: start: 201603
  41. MORPHINE [Concomitant]
     Active Substance: MORPHINE
     Dosage: 0.02 GRAM, QID
     Route: 048
     Dates: start: 201603
  42. MORPHINE [Concomitant]
     Active Substance: MORPHINE
     Dosage: 0.02 GRAM, QID
     Route: 048
     Dates: start: 201603
  43. MORPHINE [Concomitant]
     Active Substance: MORPHINE
     Dosage: 0.02 GRAM, QID
     Route: 048
     Dates: start: 201603
  44. MORPHINE [Concomitant]
     Active Substance: MORPHINE
     Dosage: 0.02 GRAM, QID
     Route: 048
     Dates: start: 201603
  45. MORPHINE [Concomitant]
     Active Substance: MORPHINE
     Indication: Cancer pain
     Dosage: 20 MILLIGRAM
     Route: 065
  46. NIMESULIDE [Concomitant]
     Active Substance: NIMESULIDE
     Indication: Product used for unknown indication
     Dosage: UNK, 1-0-1
     Route: 065
  47. NIMESULIDE [Concomitant]
     Active Substance: NIMESULIDE
     Dosage: UNK, 1-0-1
     Route: 065
  48. NIMESULIDE [Concomitant]
     Active Substance: NIMESULIDE
     Dosage: UNK, 1-0-1
     Route: 065
  49. NIMESULIDE [Concomitant]
     Active Substance: NIMESULIDE
     Dosage: UNK, 1-0-1
     Route: 065
  50. NIMESULIDE [Concomitant]
     Active Substance: NIMESULIDE
     Dosage: UNK, 1-0-1
     Route: 065
  51. PREGABALIN [Concomitant]
     Active Substance: PREGABALIN
     Dosage: 0.15 GRAM, BIDUNK
     Route: 065
  52. PREGABALIN [Concomitant]
     Active Substance: PREGABALIN
     Dosage: 0.15 GRAM, BIDUNK
     Route: 065
  53. PREGABALIN [Concomitant]
     Active Substance: PREGABALIN
     Dosage: 0.15 GRAM, BIDUNK
     Route: 065
  54. PREGABALIN [Concomitant]
     Active Substance: PREGABALIN
     Indication: Product used for unknown indication
     Dosage: 0.15 GRAM, QD
     Route: 065
  55. PREGABALIN [Concomitant]
     Active Substance: PREGABALIN
     Dosage: 0.15 GRAM, QDUNK
     Route: 065
  56. PREGABALIN [Concomitant]
     Active Substance: PREGABALIN
     Dosage: 0.15 GRAM, QDUNK
     Route: 065
  57. PREGABALIN [Concomitant]
     Active Substance: PREGABALIN
     Dosage: 0.15 GRAM, QDUNK
     Route: 065
  58. PREGABALIN [Concomitant]
     Active Substance: PREGABALIN
     Dosage: 0.15 G, BID
     Route: 065
  59. TAPENTADOL [Concomitant]
     Active Substance: TAPENTADOL
     Dosage: 0.1 MG, QD (0.05 G, 2X PER DAY (SLOW-RELEASE)
     Route: 065
  60. TAPENTADOL [Concomitant]
     Active Substance: TAPENTADOL
     Dosage: 0.1 MILLIGRAM, QD
     Route: 065
  61. TAPENTADOL [Concomitant]
     Active Substance: TAPENTADOL
     Indication: Product used for unknown indication
     Dosage: 100 MG, QD
     Route: 065
  62. TAPENTADOL [Concomitant]
     Active Substance: TAPENTADOL
     Dosage: 100 MILLIGRAM, QD
     Route: 065
  63. TAPENTADOL [Concomitant]
     Active Substance: TAPENTADOL
     Dosage: 150 MG, QD
     Route: 065
  64. TAPENTADOL [Concomitant]
     Active Substance: TAPENTADOL
     Dosage: 150 MILLIGRAM, QD
     Route: 065
  65. TAPENTADOL [Concomitant]
     Active Substance: TAPENTADOL
     Dosage: 75 MG
     Route: 065
  66. TAPENTADOL [Concomitant]
     Active Substance: TAPENTADOL
     Dosage: 75 MILLIGRAMUNK
     Route: 065
  67. VITAMIN D3 [Concomitant]
     Active Substance: CHOLECALCIFEROL
     Indication: Product used for unknown indication
     Dosage: 4000 INTERNATIONAL UNIT, QD
     Route: 065
     Dates: start: 201603
  68. VITAMIN D3 [Concomitant]
     Active Substance: CHOLECALCIFEROL
     Dosage: 4000 INTERNATIONAL UNIT, QD
     Route: 065
     Dates: start: 201603
  69. VITAMIN D3 [Concomitant]
     Active Substance: CHOLECALCIFEROL
     Dosage: 4000 INTERNATIONAL UNIT, QD
     Route: 065
     Dates: start: 201603
  70. VITAMIN D3 [Concomitant]
     Active Substance: CHOLECALCIFEROL
     Dosage: 4000 INTERNATIONAL UNIT, QD
     Route: 065
     Dates: start: 201603

REACTIONS (21)
  - Chronic kidney disease [Fatal]
  - Confusional state [Fatal]
  - Polyneuropathy in malignant disease [Fatal]
  - Decreased appetite [Fatal]
  - Allodynia [Fatal]
  - Constipation [Fatal]
  - Quality of life decreased [Fatal]
  - Polyneuropathy [Fatal]
  - Dermatitis allergic [Fatal]
  - Drug ineffective [Fatal]
  - Metastases to lung [Unknown]
  - Hyperaesthesia [Recovered/Resolved]
  - Anaemia [Unknown]
  - Toxicity to various agents [Recovered/Resolved]
  - Metastases to bone [Unknown]
  - Prostate cancer [Unknown]
  - Malignant neoplasm progression [Unknown]
  - Drug dependence [Recovered/Resolved]
  - Neuropathy peripheral [Not Recovered/Not Resolved]
  - Pain [Unknown]
  - Product use in unapproved indication [Unknown]

NARRATIVE: CASE EVENT DATE: 20160101
